FAERS Safety Report 5079206-7 (Version None)
Quarter: 2006Q3

REPORT INFORMATION
  Report Type: 
  Country: None (occurrence: None)
  Receive Date: 20060808
  Receipt Date: 20060726
  Transmission Date: 20061208
  Serious: Yes (Other)
  Sender: FDA-Public Use
  Company Number: 2006087832

PATIENT
  Age: 75 Year
  Sex: Male

DRUGS (4)
  1. CLINDAMYCIN HCL [Suspect]
     Indication: DIABETIC FOOT INFECTION
     Dosage: 600 MG (300 MG, 2 IN 1 D), ORAL; SEE IMAGE
     Route: 048
     Dates: start: 20060703, end: 20060706
  2. CLINDAMYCIN HCL [Suspect]
     Indication: DIABETIC FOOT INFECTION
     Dosage: 600 MG (300 MG, 2 IN 1 D), ORAL; SEE IMAGE
     Route: 048
     Dates: start: 20060712, end: 20060712
  3. CLINDAMYCIN HCL [Suspect]
     Indication: DIABETIC FOOT INFECTION
     Dosage: 600 MG (300 MG, 2 IN 1 D), ORAL; SEE IMAGE
     Route: 048
     Dates: start: 20060707
  4. MEROPENEM (MEROPENEM) [Concomitant]

REACTIONS (1)
  - MELAENA [None]
